FAERS Safety Report 9745701 (Version 3)
Quarter: 2014Q1

REPORT INFORMATION
  Report Type: Spontaneous
  Country: DE (occurrence: DE)
  Receive Date: 20131211
  Receipt Date: 20140117
  Transmission Date: 20141002
  Serious: Yes (Hospitalization, Other)
  Sender: FDA-Public Use
  Company Number: DE-ASTELLAS-2013EU010702

PATIENT
  Age: 86 Year
  Sex: Male
  Weight: 52 kg

DRUGS (5)
  1. XTANDI [Suspect]
     Indication: PROSTATE CANCER METASTATIC
     Dosage: 160 MG, UID/QD
     Route: 048
     Dates: start: 20131030
  2. METOCLOPRAMIDE [Concomitant]
     Dosage: UNK
     Route: 065
  3. NIFURANTIN [Concomitant]
     Dosage: 100 MG, UNKNOWN/D
     Route: 065
  4. PREDNISOLON                        /00016201/ [Concomitant]
     Dosage: 5 MG, UNKNOWN/D
     Route: 065
  5. PROLIA [Concomitant]
     Dosage: 60 MG, UNKNOWN/D
     Route: 065

REACTIONS (2)
  - Malignant neoplasm progression [Unknown]
  - Dehydration [Recovered/Resolved]
